FAERS Safety Report 18555863 (Version 1)
Quarter: 2020Q4

REPORT INFORMATION
  Report Type: Spontaneous
  Country: US (occurrence: US)
  Receive Date: 20201127
  Receipt Date: 20201127
  Transmission Date: 20210114
  Serious: No
  Sender: FDA-Public Use
  Company Number: US-ASTRAZENECA-2020SF43183

PATIENT
  Age: 69 Year
  Sex: Female
  Weight: 72.6 kg

DRUGS (2)
  1. FASLODEX [Suspect]
     Active Substance: FULVESTRANT
     Dosage: UNKNOWN
     Route: 030
  2. IBRANCE [Suspect]
     Active Substance: PALBOCICLIB
     Indication: BREAST CANCER STAGE IV
     Dosage: 21 DAYS ON AN OFF FOR 7 DAYS
     Route: 048
     Dates: start: 2020

REACTIONS (4)
  - Hepatic enzyme increased [Recovering/Resolving]
  - Alanine aminotransferase abnormal [Unknown]
  - Aspartate aminotransferase abnormal [Unknown]
  - Product lot number issue [Unknown]

NARRATIVE: CASE EVENT DATE: 20200928
